FAERS Safety Report 6046000-X (Version None)
Quarter: 2009Q1

REPORT INFORMATION
  Report Type: 
  Country: None (occurrence: None)
  Receive Date: 20090116
  Receipt Date: 20090105
  Transmission Date: 20090719
  Serious: Yes (Death)
  Sender: FDA-Public Use
  Company Number: DSA_32994_2009

PATIENT
  Age: 69 Year
  Sex: Male

DRUGS (14)
  1. LORAZEPAM [Suspect]
     Indication: DRUG USE FOR UNKNOWN INDICATION
     Dosage: (DF ORAL)
     Route: 048
  2. AMLODIPINE [Suspect]
     Indication: DRUG USE FOR UNKNOWN INDICATION
     Dosage: (DF ORAL)
     Route: 048
  3. METOPROLOL SUCCINATE [Suspect]
     Indication: DRUG USE FOR UNKNOWN INDICATION
     Dosage: (DF ORAL)
     Route: 048
  4. CLONIDINE [Suspect]
     Indication: DRUG USE FOR UNKNOWN INDICATION
     Dosage: (DF ORAL)
     Route: 048
  5. SODIUM SALICYLATE ECT [Suspect]
     Indication: DRUG USE FOR UNKNOWN INDICATION
     Dosage: (DF ORAL)
     Route: 048
  6. ALBUTEROL [Suspect]
     Indication: DRUG USE FOR UNKNOWN INDICATION
     Dosage: (DF ORAL)
     Route: 048
  7. RANITIDINE [Suspect]
     Indication: DRUG USE FOR UNKNOWN INDICATION
     Dosage: (DF ORAL)
     Route: 048
  8. TIAGABINE HCL [Suspect]
     Indication: DRUG USE FOR UNKNOWN INDICATION
     Dosage: (DF ORAL)
     Route: 048
  9. DIURETICS [Suspect]
     Indication: DRUG USE FOR UNKNOWN INDICATION
     Dosage: (DF ORAL)
     Route: 048
  10. CLOPIDOGREL [Suspect]
     Indication: DRUG USE FOR UNKNOWN INDICATION
     Dosage: (DF ORAL)
     Route: 048
  11. LISINOPRIL [Suspect]
     Indication: DRUG USE FOR UNKNOWN INDICATION
     Dosage: (DF ORAL)
     Route: 048
  12. EZETIMIBE [Suspect]
     Indication: DRUG USE FOR UNKNOWN INDICATION
     Dosage: (DF ORAL)
     Route: 048
  13. ATORVASTATIN CALCIUM [Suspect]
     Indication: DRUG USE FOR UNKNOWN INDICATION
     Dosage: (DF ORAL)
     Route: 048
  14. PHENYTOIN [Suspect]
     Indication: DRUG USE FOR UNKNOWN INDICATION
     Dosage: (DF ORAL)
     Route: 048

REACTIONS (1)
  - COMPLETED SUICIDE [None]
